FAERS Safety Report 8405596-0 (Version None)
Quarter: 2012Q2

REPORT INFORMATION
  Report Type: 
  Country: None (occurrence: None)
  Receive Date: 20120604
  Receipt Date: 20120523
  Transmission Date: 20120825
  Serious: No
  Sender: FDA-Public Use
  Company Number: US-BIOGENIDEC-2012BI018891

PATIENT
  Sex: Female

DRUGS (1)
  1. TYSABRI [Suspect]
     Indication: MULTIPLE SCLEROSIS
     Route: 042
     Dates: start: 20120213

REACTIONS (8)
  - INFLUENZA LIKE ILLNESS [None]
  - FATIGUE [None]
  - DEPRESSED MOOD [None]
  - BLOOD PRESSURE INCREASED [None]
  - VISUAL IMPAIRMENT [None]
  - CATHETER SITE PAIN [None]
  - MEMORY IMPAIRMENT [None]
  - MOTION SICKNESS [None]
